FAERS Safety Report 15566191 (Version 1)
Quarter: 2018Q4

REPORT INFORMATION
  Report Type: Spontaneous
  Country: US (occurrence: US)
  Receive Date: 20181030
  Receipt Date: 20181030
  Transmission Date: 20190205
  Serious: Yes (Other)
  Sender: FDA-Public Use
  Company Number: US-MYLANLABS-2018M1079344

PATIENT
  Age: 39 Year
  Sex: Female

DRUGS (3)
  1. HEPARIN [Suspect]
     Active Substance: HEPARIN SODIUM
     Indication: THROMBOSIS IN DEVICE
     Dosage: TITRATED TO INSTITUTIONAL GOAL USING A WEIGHT-BASED NOMOGRAM
     Route: 065
  2. SODIUM BICARBONATE. [Concomitant]
     Active Substance: SODIUM BICARBONATE
     Indication: PH URINE
     Route: 050
  3. TIROFIBAN [Suspect]
     Active Substance: TIROFIBAN
     Indication: THROMBOSIS IN DEVICE
     Dosage: 0.075 ?G/KG, QMINUTE
     Route: 065

REACTIONS (1)
  - Treatment failure [Unknown]
